FAERS Safety Report 18446621 (Version 1)
Quarter: 2020Q4

REPORT INFORMATION
  Report Type: Spontaneous
  Country: US (occurrence: US)
  Receive Date: 20201030
  Receipt Date: 20201030
  Transmission Date: 20210114
  Serious: Yes (Other)
  Sender: FDA-Public Use
  Company Number: US-AMGEN-USASP2020173672

PATIENT
  Age: 58 Year
  Sex: Female

DRUGS (21)
  1. ATORVASTATIN [Concomitant]
     Active Substance: ATORVASTATIN
  2. LEVOCETIRIZINE [Concomitant]
     Active Substance: LEVOCETIRIZINE
  3. OMEPRAZOLE. [Concomitant]
     Active Substance: OMEPRAZOLE
  4. PREGABALIN. [Concomitant]
     Active Substance: PREGABALIN
  5. OTEZLA [Suspect]
     Active Substance: APREMILAST
     Indication: PSORIATIC ARTHROPATHY
     Dosage: 30 MILLIGRAM, BID
     Route: 048
     Dates: start: 20200618
  6. NIFEDIPINE. [Concomitant]
     Active Substance: NIFEDIPINE
  7. TIZANIDINE. [Concomitant]
     Active Substance: TIZANIDINE
  8. LOSARTAN. [Concomitant]
     Active Substance: LOSARTAN
  9. MONTELUKAST [Concomitant]
     Active Substance: MONTELUKAST SODIUM
  10. CELECOXIB. [Concomitant]
     Active Substance: CELECOXIB
  11. CHLORZOXAZONE. [Concomitant]
     Active Substance: CHLORZOXAZONE
  12. ORTHOVISC [Concomitant]
     Active Substance: HYALURONIC ACID
  13. CLOBETASOL [Concomitant]
     Active Substance: CLOBETASOL
  14. AMLODIPINE [Concomitant]
     Active Substance: AMLODIPINE BESYLATE
  15. ALENDRONATE [Concomitant]
     Active Substance: ALENDRONATE SODIUM
  16. HYDROCODONE BITARTRATE AND ACETAMINOPHEN [Concomitant]
     Active Substance: ACETAMINOPHEN\HYDROCODONE BITARTRATE
  17. VITAMIN D [COLECALCIFEROL] [Concomitant]
     Active Substance: CHOLECALCIFEROL
  18. OTEZLA [Suspect]
     Active Substance: APREMILAST
     Indication: PSORIASIS
  19. FLUTICASONE. [Concomitant]
     Active Substance: FLUTICASONE
  20. TRAMADOL. [Concomitant]
     Active Substance: TRAMADOL
  21. BACLOFEN. [Concomitant]
     Active Substance: BACLOFEN

REACTIONS (3)
  - Limb operation [Unknown]
  - Somnolence [Unknown]
  - Product dose omission issue [Unknown]

NARRATIVE: CASE EVENT DATE: 202010
